APPROVED DRUG PRODUCT: SALUTENSIN-DEMI
Active Ingredient: HYDROFLUMETHIAZIDE; RESERPINE
Strength: 25MG;0.125MG
Dosage Form/Route: TABLET;ORAL
Application: N012359 | Product #004
Applicant: SHIRE DEVELOPMENT INC
Approved: Approved Prior to Jan 1, 1982 | RLD: No | RS: No | Type: DISCN